FAERS Safety Report 6231531-X (Version None)
Quarter: 2009Q2

REPORT INFORMATION
  Report Type: 
  Country: None (occurrence: None)
  Receive Date: 20090616
  Receipt Date: 20090602
  Transmission Date: 20091009
  Serious: Yes (Other)
  Sender: FDA-Public Use
  Company Number: DE-AMGEN-US342520

PATIENT
  Sex: Female

DRUGS (6)
  1. ENBREL [Suspect]
     Indication: PSORIATIC ARTHROPATHY
     Route: 058
     Dates: start: 20090320, end: 20090403
  2. ENBREL [Suspect]
     Route: 058
     Dates: start: 20090507
  3. FORMOTEROL FUMARATE [Concomitant]
     Indication: ASTHMA
     Route: 055
     Dates: start: 20081001, end: 20090407
  4. BECLOMETASONE DIPROPIONATE [Concomitant]
     Indication: ASTHMA
     Route: 055
     Dates: start: 20081001, end: 20090407
  5. IBUPROFEN [Concomitant]
     Indication: ARTHRITIS
     Dosage: 600 MG 1-2 TIMES PER DAY
     Route: 048
     Dates: start: 20081001, end: 20090407
  6. OPIPRAMOL [Concomitant]
     Indication: DEPRESSION
     Route: 048
     Dates: start: 20090101, end: 20090407

REACTIONS (4)
  - ALANINE AMINOTRANSFERASE INCREASED [None]
  - ASPARTATE AMINOTRANSFERASE INCREASED [None]
  - CONCOMITANT DISEASE PROGRESSION [None]
  - GAMMA-GLUTAMYLTRANSFERASE INCREASED [None]
